FAERS Safety Report 16036249 (Version 1)
Quarter: 2019Q1

REPORT INFORMATION
  Report Type: Spontaneous
  Country: JP (occurrence: JP)
  Receive Date: 20190305
  Receipt Date: 20190305
  Transmission Date: 20190418
  Serious: Yes (Other)
  Sender: FDA-Public Use
  Company Number: JP-PFIZER INC-2019091003

PATIENT
  Age: 53 Year
  Sex: Male

DRUGS (2)
  1. LYRICA [Suspect]
     Active Substance: PREGABALIN
     Dosage: UNK
     Route: 048
  2. CELECOX [Suspect]
     Active Substance: CELECOXIB
     Dosage: UNK
     Route: 048

REACTIONS (1)
  - Intestinal obstruction [Unknown]
